FAERS Safety Report 9714130 (Version 2)
Quarter: 2015Q3

REPORT INFORMATION
  Report Type: Spontaneous
  Country: US (occurrence: US)
  Receive Date: 20131126
  Receipt Date: 20150803
  Transmission Date: 20151125
  Serious: No
  Sender: FDA-Public Use
  Company Number: US-GILEAD-2008-0018842

PATIENT
  Age: 47 Year
  Sex: Female
  Weight: 57.61 kg

DRUGS (10)
  1. WARFARIN [Concomitant]
     Active Substance: WARFARIN
  2. ADVAIR HFA [Concomitant]
     Active Substance: FLUTICASONE PROPIONATE\SALMETEROL XINAFOATE
  3. POTASSIUM CHLORIDE. [Concomitant]
     Active Substance: POTASSIUM CHLORIDE
  4. LASIX [Concomitant]
     Active Substance: FUROSEMIDE
  5. LETAIRIS [Suspect]
     Active Substance: AMBRISENTAN
     Indication: PULMONARY ARTERIAL HYPERTENSION
     Dates: start: 20080709
  6. FLOLAN [Concomitant]
     Active Substance: EPOPROSTENOL SODIUM
  7. SOTALOL. [Concomitant]
     Active Substance: SOTALOL
  8. REVATIO [Concomitant]
     Active Substance: SILDENAFIL CITRATE
  9. ALDACTAZIDE [Concomitant]
     Active Substance: HYDROCHLOROTHIAZIDE\SPIRONOLACTONE
  10. FERROUS SULFATE [Concomitant]
     Active Substance: FERROUS SULFATE\FERROUS SULFATE, DRIED

REACTIONS (1)
  - Pruritus [None]
